FAERS Safety Report 7454625-X (Version None)
Quarter: 2011Q2

REPORT INFORMATION
  Report Type: 
  Country: None (occurrence: None)
  Receive Date: 20110425
  Receipt Date: 20110411
  Transmission Date: 20111010
  Serious: Yes (Other)
  Sender: FDA-Public Use
  Company Number: 028806

PATIENT
  Sex: Male

DRUGS (4)
  1. FOLIC ACID [Concomitant]
  2. CIMZIA [Suspect]
     Indication: RHEUMATOID ARTHRITIS
     Dosage: (SUBCUTANEOUS), (400 MG, 3 INJECTIONS SUBCUTANEOUS), (200 MG, 1 INJECTION SUBCUTANEOUS)
     Route: 058
     Dates: start: 20101112
  3. PREDNISOLONE [Concomitant]
  4. METHOTREXATE [Concomitant]

REACTIONS (3)
  - BLISTER [None]
  - PUSTULAR PSORIASIS [None]
  - RASH [None]
